FAERS Safety Report 6702733-0 (Version None)
Quarter: 2010Q2

REPORT INFORMATION
  Report Type: 
  Country: None (occurrence: None)
  Receive Date: 20100428
  Receipt Date: 20100406
  Transmission Date: 20101027
  Serious: Yes (Life-Threatening, Other)
  Sender: FDA-Public Use
  Company Number: 2010AL002021

PATIENT
  Age: 66 Year
  Sex: Male

DRUGS (2)
  1. IRINOTECAN HYDROCHLORIDE [Suspect]
     Indication: HYPOPHARYNGEAL CANCER STAGE IV
     Dosage: 70 MH/M2; IV
     Route: 042
  2. DOCETAXEL [Concomitant]

REACTIONS (5)
  - DIARRHOEA [None]
  - DRUG TOXICITY [None]
  - ELECTROLYTE IMBALANCE [None]
  - FEBRILE NEUTROPENIA [None]
  - STUPOR [None]
